FAERS Safety Report 8902896 (Version 1)
Quarter: 2012Q4

REPORT INFORMATION
  Report Type: Report from Study
  Country: DE (occurrence: DE)
  Receive Date: 20121113
  Receipt Date: 20121113
  Transmission Date: 20130627
  Serious: Yes (Death, Hospitalization)
  Sender: FDA-Public Use
  Company Number: DE-INCYTE CORPORATION-2012IN002253

PATIENT
  Sex: Female

DRUGS (1)
  1. INC424 [Suspect]
     Dosage: 25 mg, bid
     Route: 048
     Dates: start: 20120124, end: 201209

REACTIONS (1)
  - Pulmonary fibrosis [Fatal]
